FAERS Safety Report 4998029-8 (Version None)
Quarter: 2006Q2

REPORT INFORMATION
  Report Type: 
  Country: None (occurrence: None)
  Receive Date: 20060508
  Receipt Date: 20060425
  Transmission Date: 20061013
  Serious: Yes (Death)
  Sender: FDA-Public Use
  Company Number: HQWYE090501MAR06

PATIENT
  Age: 55 Year
  Sex: Female
  Weight: 90.8 kg

DRUGS (14)
  1. ZOSYN [Suspect]
     Indication: ANTI-INFECTIVE THERAPY
     Dosage: INTRAVENOUS
     Route: 042
     Dates: start: 20060204, end: 20060213
  2. ZOSYN [Suspect]
     Indication: CANDIDIASIS
     Dosage: INTRAVENOUS
     Route: 042
     Dates: start: 20060204, end: 20060213
  3. VANCOMYCIN [Concomitant]
  4. FLUCONAZOLE [Concomitant]
  5. SYNTHROID [Concomitant]
  6. SOLU-MEDROL [Concomitant]
  7. COPAXONE [Concomitant]
  8. BACLOFEN [Concomitant]
  9. OXYBUTYNIN CHLORIDE [Concomitant]
  10. ALENDRONATE SODIUM [Concomitant]
  11. ATIVAN [Concomitant]
  12. ATROPINE [Concomitant]
  13. ZANAFLEX [Concomitant]
  14. UNSPECIFIED HERBAL PRODUCT (UNSPECIFIED HERBAL PRODUCT) [Concomitant]

REACTIONS (5)
  - CONFUSIONAL STATE [None]
  - HEPATIC MASS [None]
  - METABOLIC ALKALOSIS [None]
  - RENAL FAILURE ACUTE [None]
  - RESPIRATORY ALKALOSIS [None]
